FAERS Safety Report 17535401 (Version 2)
Quarter: 2020Q1

REPORT INFORMATION
  Report Type: Spontaneous
  Country: US (occurrence: US)
  Receive Date: 20200312
  Receipt Date: 20200320
  Transmission Date: 20200409
  Serious: Yes (Hospitalization)
  Sender: FDA-Public Use
  Company Number: US-ACTELION-A-NJ2020-202867

PATIENT
  Age: 69 Year
  Sex: Female

DRUGS (1)
  1. OPSUMIT [Suspect]
     Active Substance: MACITENTAN
     Indication: PULMONARY ARTERIAL HYPERTENSION
     Dosage: 10 MG, QD
     Route: 048
     Dates: start: 20191224, end: 20200216

REACTIONS (9)
  - Pneumonia [Recovering/Resolving]
  - Dyspnoea [Recovering/Resolving]
  - Cardiac failure congestive [Recovering/Resolving]
  - Productive cough [Recovering/Resolving]
  - Hypotension [Recovering/Resolving]
  - Sinus congestion [Recovering/Resolving]
  - Nasopharyngitis [Recovering/Resolving]
  - Pharyngitis streptococcal [Recovering/Resolving]
  - Headache [Recovering/Resolving]

NARRATIVE: CASE EVENT DATE: 20200216
